FAERS Safety Report 9095900 (Version 3)
Quarter: 2014Q2

REPORT INFORMATION
  Report Type: Spontaneous
  Country: US (occurrence: US)
  Receive Date: 20130219
  Receipt Date: 20140410
  Transmission Date: 20141212
  Serious: Yes (Hospitalization, Other)
  Sender: FDA-Public Use
  Company Number: US-009507513-1302USA008544

PATIENT
  Sex: Female
  Weight: 53.61 kg

DRUGS (3)
  1. FOSAMAX [Suspect]
     Indication: OSTEOPOROSIS PROPHYLAXIS
     Dosage: 70 MG, QW
     Route: 048
     Dates: start: 2002, end: 2009
  2. ALENDRONATE SODIUM [Suspect]
     Dosage: 70 MG, QW
     Route: 048
  3. FOSAMAX PLUS D [Suspect]
     Dosage: 70 MG, QW, +D 2800

REACTIONS (32)
  - Intramedullary rod insertion [Unknown]
  - Femur fracture [Unknown]
  - Knee arthroplasty [Unknown]
  - Hypoacusis [Unknown]
  - Vertebroplasty [Unknown]
  - Joint arthroplasty [Unknown]
  - Hip arthroplasty [Unknown]
  - Surgery [Unknown]
  - Spinal compression fracture [Unknown]
  - Compression fracture [Unknown]
  - Osteoporosis [Unknown]
  - Sinus disorder [Unknown]
  - Rib fracture [Unknown]
  - Traumatic lung injury [Unknown]
  - Balance disorder [Not Recovered/Not Resolved]
  - Oesophageal candidiasis [Recovering/Resolving]
  - Urinary tract infection [Unknown]
  - Blood pressure increased [Unknown]
  - Pelvic fracture [Unknown]
  - Gait disturbance [Not Recovered/Not Resolved]
  - Burns second degree [Unknown]
  - Fall [Unknown]
  - Hiatus hernia [Unknown]
  - Fatigue [Unknown]
  - Dysphagia [Unknown]
  - Arthralgia [Unknown]
  - Arthralgia [Unknown]
  - Nausea [Unknown]
  - Constipation [Unknown]
  - Vomiting [Unknown]
  - Dizziness [Unknown]
  - Drug ineffective [Unknown]
